FAERS Safety Report 8960761 (Version 1)
Quarter: 2012Q4

REPORT INFORMATION
  Report Type: 
  Country: US (occurrence: US)
  Receive Date: 20121213
  Receipt Date: 20121213
  Transmission Date: 20130627
  Serious: Yes (Other)
  Sender: FDA-Public Use
  Company Number: PHEH2012US024505

PATIENT
  Age: 67 Year
  Sex: Male

DRUGS (12)
  1. TASIGNA [Suspect]
     Indication: NEOPLASM MALIGNANT
     Dosage: 400 mg, QD
     Dates: start: 20111005, end: 20120712
  2. LANTUS [Concomitant]
  3. LOVAZA [Concomitant]
  4. METOPROLOL [Concomitant]
  5. NORVASC [Concomitant]
  6. NOVOLOG [Concomitant]
  7. TRICOR [Concomitant]
  8. ZESTRIL [Concomitant]
  9. ZETIA [Concomitant]
  10. IMDUR [Concomitant]
  11. PRAVACHOL [Concomitant]
  12. RANAX [Concomitant]

REACTIONS (1)
  - Electrocardiogram QT prolonged [Not Recovered/Not Resolved]
